FAERS Safety Report 9365622 (Version 1)
Quarter: 2013Q2

REPORT INFORMATION
  Report Type: Spontaneous
  Country: US (occurrence: None)
  Receive Date: 20130624
  Receipt Date: 20130624
  Transmission Date: 20140414
  Serious: Yes (Disabling, Other)
  Sender: FDA-Public Use
  Company Number: None

PATIENT
  Age: 42 Year
  Sex: Female
  Weight: 50.8 kg

DRUGS (9)
  1. ALAPRAZOLAM [Suspect]
     Indication: ANXIETY
     Dosage: 3 PILLS A DAY TOTAL 90, ONE PILL THREE TIMES A DAY
     Route: 048
     Dates: start: 20130615, end: 20130623
  2. ALAPRAZOLAM [Suspect]
     Indication: PANIC ATTACK
     Dosage: 3 PILLS A DAY TOTAL 90, ONE PILL THREE TIMES A DAY
     Route: 048
     Dates: start: 20130615, end: 20130623
  3. SYNTHROID [Concomitant]
  4. CYMBALTA [Concomitant]
  5. IMITREX [Concomitant]
  6. PHENERGAN [Concomitant]
  7. XANAX [Concomitant]
  8. MIRALAX [Concomitant]
  9. SLEEPY TIME LIPTON TEA [Concomitant]

REACTIONS (5)
  - Coeliac disease [None]
  - Malaise [None]
  - Drug ineffective [None]
  - Product substitution issue [None]
  - Cardiac disorder [None]
